FAERS Safety Report 8607110 (Version 3)
Quarter: 2014Q1

REPORT INFORMATION
  Report Type: Spontaneous
  Country: US (occurrence: US)
  Receive Date: 20120611
  Receipt Date: 20140103
  Transmission Date: 20141002
  Serious: Yes (Hospitalization, Disabling)
  Sender: FDA-Public Use
  Company Number: US-ASTRAZENECA-2012SE34414

PATIENT
  Age: 23408 Day
  Sex: Male
  Weight: 81.6 kg

DRUGS (13)
  1. NEXIUM [Suspect]
     Indication: GASTROOESOPHAGEAL REFLUX DISEASE
     Route: 048
  2. NEXIUM [Suspect]
     Indication: GASTROOESOPHAGEAL REFLUX DISEASE
     Route: 048
  3. PRILOSEC [Suspect]
     Indication: GASTROOESOPHAGEAL REFLUX DISEASE
     Route: 048
  4. PROTONIX [Concomitant]
     Indication: GASTROOESOPHAGEAL REFLUX DISEASE
  5. PREVACID [Concomitant]
     Indication: GASTROOESOPHAGEAL REFLUX DISEASE
     Route: 048
  6. ZANTAC [Concomitant]
  7. TAGAMET [Concomitant]
  8. HYDROCHLOROTHIAZIDE [Concomitant]
  9. ADVAIR [Concomitant]
  10. PREDNISONE [Concomitant]
  11. LASIX [Concomitant]
  12. LASIX [Concomitant]
  13. PEPCID AC [Concomitant]
     Route: 048

REACTIONS (9)
  - Femur fracture [Unknown]
  - Back injury [Unknown]
  - Osteoporosis [Unknown]
  - Multiple fractures [Unknown]
  - Chronic obstructive pulmonary disease [Unknown]
  - Osteoarthritis [Unknown]
  - Chondromalacia [Unknown]
  - Osteopenia [Unknown]
  - Vitamin B12 deficiency [Unknown]
